FAERS Safety Report 14300838 (Version 3)
Quarter: 2018Q4

REPORT INFORMATION
  Report Type: Spontaneous
  Country: US (occurrence: US)
  Receive Date: 20171219
  Receipt Date: 20181019
  Transmission Date: 20190204
  Serious: Yes (Hospitalization, Other)
  Sender: FDA-Public Use
  Company Number: US-DSJP-DSU-2017-139819

PATIENT

DRUGS (3)
  1. BENICAR [Suspect]
     Active Substance: OLMESARTAN MEDOXOMIL
     Indication: HYPERTENSION
     Dosage: 40 MG, UNK
     Dates: start: 20061030, end: 20140325
  2. BENICAR HCT [Suspect]
     Active Substance: HYDROCHLOROTHIAZIDE\OLMESARTAN MEDOXOMIL
     Indication: PRODUCT USED FOR UNKNOWN INDICATION
     Dosage: 40/12.5MG, QD
     Route: 048
     Dates: start: 20061030, end: 20140325
  3. BENICAR HCT [Suspect]
     Active Substance: HYDROCHLOROTHIAZIDE\OLMESARTAN MEDOXOMIL
     Dosage: 20/12.5MG, QD
     Route: 048
     Dates: start: 20140325

REACTIONS (10)
  - Hiatus hernia [Unknown]
  - Gastrooesophageal reflux disease [Unknown]
  - Small intestinal obstruction [Recovered/Resolved]
  - Diverticulum [Unknown]
  - Sprue-like enteropathy [Recovering/Resolving]
  - Large intestine polyp [Unknown]
  - Inflammatory bowel disease [Unknown]
  - Acute kidney injury [Unknown]
  - Coeliac disease [Unknown]
  - Diverticulitis [Unknown]

NARRATIVE: CASE EVENT DATE: 20090409
